FAERS Safety Report 8833281 (Version 1)
Quarter: 2012Q4

REPORT INFORMATION
  Report Type: Report from Study
  Country: HU (occurrence: HU)
  Receive Date: 20121010
  Receipt Date: 20121010
  Transmission Date: 20130627
  Serious: Yes (Death)
  Sender: FDA-Public Use
  Company Number: HU-ROCHE-1139219

PATIENT
  Sex: Male
  Weight: 62 kg

DRUGS (2)
  1. XELODA [Suspect]
     Indication: PRODUCT USED FOR UNKNOWN INDICATION
     Route: 048
     Dates: start: 20120918, end: 20120925
  2. OXALIPLATIN [Concomitant]
     Route: 042

REACTIONS (2)
  - Decreased appetite [Fatal]
  - Asthenia [Fatal]
